FAERS Safety Report 10170529 (Version 1)
Quarter: 2014Q2

REPORT INFORMATION
  Report Type: Report from Study
  Country: MX (occurrence: MX)
  Receive Date: 20140513
  Receipt Date: 20140513
  Transmission Date: 20141212
  Serious: Yes (Death)
  Sender: FDA-Public Use
  Company Number: PHHY2014MX057715

PATIENT
  Age: 78 Year
  Sex: Female

DRUGS (1)
  1. DIOVAN [Suspect]
     Indication: BLOOD PRESSURE ABNORMAL
     Dosage: 1 TABLET (80 MG) DAILY
     Route: 048
     Dates: start: 20130208

REACTIONS (2)
  - Dyspnoea [Fatal]
  - Cardiac disorder [Fatal]
